FAERS Safety Report 6153656-X (Version None)
Quarter: 2009Q2

REPORT INFORMATION
  Report Type: 
  Country: None (occurrence: None)
  Receive Date: 20090409
  Receipt Date: 20090406
  Transmission Date: 20091009
  Serious: Yes (Life-Threatening, Hospitalization)
  Sender: FDA-Public Use
  Company Number: 2008SP024218

PATIENT
  Age: 65 Year
  Sex: Male
  Weight: 61 kg

DRUGS (8)
  1. PEG-INTRON [Suspect]
     Indication: HEPATITIS C
     Dosage: 75 MCG; QW; SC
     Route: 058
     Dates: start: 20080603, end: 20081118
  2. REBETOL [Suspect]
     Indication: HEPATITIS C
     Dosage: 800 MG; QD; PO, 600 MG; QD; PO
     Route: 048
     Dates: start: 20080603, end: 20080624
  3. REBETOL [Suspect]
     Indication: HEPATITIS C
     Dosage: 800 MG; QD; PO, 600 MG; QD; PO
     Route: 048
     Dates: start: 20080625, end: 20081121
  4. NORVASC [Concomitant]
  5. NU-LOTAN [Concomitant]
  6. LENDORMIN [Concomitant]
  7. LOXONIN [Concomitant]
  8. GASTER D [Concomitant]

REACTIONS (4)
  - ANAEMIA [None]
  - ATRIOVENTRICULAR BLOCK SECOND DEGREE [None]
  - MALAISE [None]
  - PSORIASIS [None]
